FAERS Safety Report 17922392 (Version 2)
Quarter: 2020Q3

REPORT INFORMATION
  Report Type: Spontaneous
  Country: US (occurrence: US)
  Receive Date: 20200622
  Receipt Date: 20200708
  Transmission Date: 20201103
  Serious: No
  Sender: FDA-Public Use
  Company Number: US-PFIZER INC-2020238339

PATIENT
  Age: 71 Year
  Sex: Female
  Weight: 72.57 kg

DRUGS (2)
  1. ESTRING [Suspect]
     Active Substance: ESTRADIOL
     Indication: ATROPHIC VULVOVAGINITIS
     Dosage: 2 MG, EVERY 3 MONTHS (2MG RING TO BE CHANGED EVERY 3 MONTHS)
     Route: 067
     Dates: start: 20200601, end: 20200610
  2. ESTRING [Suspect]
     Active Substance: ESTRADIOL
     Dosage: 2 MG, EVERY 3 MONTHS (2MG RING TO BE CHANGED EVERY 3 MONTHS)
     Route: 067
     Dates: start: 20200611, end: 20200612

REACTIONS (3)
  - Vomiting [Recovered/Resolved]
  - Headache [Recovered/Resolved]
  - Nausea [Unknown]

NARRATIVE: CASE EVENT DATE: 2020
